FAERS Safety Report 13803652 (Version 1)
Quarter: 2017Q3

REPORT INFORMATION
  Report Type: Report from Study
  Country: None (occurrence: DE)
  Receive Date: 20170728
  Receipt Date: 20170728
  Transmission Date: 20171127
  Serious: Yes (Hospitalization)
  Sender: FDA-Public Use
  Company Number: DE-ABBVIE-17K-062-2052624-00

PATIENT
  Sex: Female

DRUGS (5)
  1. HUMIRA [Suspect]
     Active Substance: ADALIMUMAB
     Indication: RHEUMATIC DISORDER
     Route: 058
     Dates: start: 200607, end: 200703
  2. AZATHIOPRINE. [Concomitant]
     Active Substance: AZATHIOPRINE
     Indication: PRODUCT USED FOR UNKNOWN INDICATION
     Dates: start: 200201, end: 200707
  3. MTX [Concomitant]
     Active Substance: METHOTREXATE SODIUM
     Indication: PRODUCT USED FOR UNKNOWN INDICATION
     Dates: start: 200707
  4. MTX [Concomitant]
     Active Substance: METHOTREXATE SODIUM
     Dates: start: 2008
  5. MTX [Concomitant]
     Active Substance: METHOTREXATE SODIUM
     Dates: end: 2008

REACTIONS (4)
  - Osteoarthritis [Unknown]
  - Subcutaneous haematoma [Unknown]
  - Haemorrhagic anaemia [Unknown]
  - Post procedural complication [Unknown]
